FAERS Safety Report 9908537 (Version 1)
Quarter: 2014Q1

REPORT INFORMATION
  Report Type: Spontaneous
  Country: US (occurrence: None)
  Receive Date: 20140214
  Receipt Date: 20140214
  Transmission Date: 20141002
  Serious: Yes (Hospitalization)
  Sender: FDA-Public Use
  Company Number: None

PATIENT
  Age: 67 Year
  Sex: Female
  Weight: 86.5 kg

DRUGS (3)
  1. RIVAROXABAN [Suspect]
     Indication: CEREBROVASCULAR ACCIDENT PROPHYLAXIS
     Dosage: RECENT
     Route: 048
  2. CLOPIDOGREL [Suspect]
     Indication: CORONARY ARTERY DISEASE
     Dosage: CHRONIC
     Route: 048
  3. ASA 81MG PO DAILY [Suspect]
     Indication: CORONARY ARTERY DISEASE
     Dosage: 81MG PO  DAILY?CHRONIC
     Route: 048

REACTIONS (3)
  - Atrial fibrillation [None]
  - Gastrointestinal haemorrhage [None]
  - Anaemia [None]
